FAERS Safety Report 5028273-5 (Version None)
Quarter: 2006Q2

REPORT INFORMATION
  Report Type: 
  Country: None (occurrence: None)
  Receive Date: 20060612
  Receipt Date: 20060324
  Transmission Date: 20061013
  Serious: Yes (Life-Threatening, Hospitalization, Disabling)
  Sender: FDA-Public Use
  Company Number: BASF-06-004

PATIENT
  Age: 10 Year
  Sex: Male

DRUGS (4)
  1. IBUPROFEN [Suspect]
     Indication: DIZZINESS
     Dosage: 400MG - ORAL
     Route: 048
     Dates: start: 20040603
  2. IBUPROFEN [Suspect]
     Indication: PAIN
     Dosage: 400MG - ORAL
     Route: 048
     Dates: start: 20040603
  3. IBUPROFEN [Suspect]
     Indication: PYREXIA
     Dosage: 400MG - ORAL
     Route: 048
     Dates: start: 20040603
  4. ANESTHETIC HALOTHANE [Concomitant]

REACTIONS (39)
  - ALANINE AMINOTRANSFERASE INCREASED [None]
  - ANAEMIA [None]
  - ANGIOPATHY [None]
  - ANOREXIA [None]
  - ASPARTATE AMINOTRANSFERASE INCREASED [None]
  - AUTOIMMUNE HEPATITIS [None]
  - CHOLESTASIS [None]
  - COAGULOPATHY [None]
  - COORDINATION ABNORMAL [None]
  - DEHYDRATION [None]
  - DEPRESSION [None]
  - DIALYSIS [None]
  - DIZZINESS [None]
  - DRUG TOXICITY [None]
  - EOSINOPHILIA [None]
  - EXTREMITY NECROSIS [None]
  - FINGER AMPUTATION [None]
  - GANGRENE [None]
  - HEPATIC ENCEPHALOPATHY [None]
  - HEPATIC FAILURE [None]
  - HEPATIC FUNCTION ABNORMAL [None]
  - HEPATIC NECROSIS [None]
  - HEPATORENAL SYNDROME [None]
  - HYPERTENSION [None]
  - HYPOGLYCAEMIA [None]
  - HYPOTENSION [None]
  - INFECTION [None]
  - JAUNDICE [None]
  - METABOLIC DISORDER [None]
  - OSTEONECROSIS [None]
  - PANCYTOPENIA [None]
  - PYREXIA [None]
  - RASH [None]
  - RENAL FAILURE [None]
  - RESPIRATORY DISTRESS [None]
  - SHOCK [None]
  - SKIN GRAFT [None]
  - TRANSAMINASES INCREASED [None]
  - WOUND [None]
